FAERS Safety Report 8268873-2 (Version None)
Quarter: 2012Q1

REPORT INFORMATION
  Report Type: 
  Country: None (occurrence: None)
  Receive Date: 20120327
  Receipt Date: 20090527
  Transmission Date: 20120608
  Serious: Yes (Other)
  Sender: FDA-Public Use
  Company Number: PHHY2009US12536

PATIENT
  Age: 64 Year
  Sex: Male

DRUGS (2)
  1. GLEEVEC [Suspect]
     Indication: CHRONIC MYELOID LEUKAEMIA
     Dosage: 400 MG,QD, ORAL
     Route: 048
     Dates: start: 20081118
  2. HYDROXYUREA [Concomitant]

REACTIONS (5)
  - VOMITING [None]
  - NAUSEA [None]
  - SURGERY [None]
  - GOUTY ARTHRITIS [None]
  - WEIGHT DECREASED [None]
